FAERS Safety Report 13838793 (Version 1)
Quarter: 2017Q3

REPORT INFORMATION
  Report Type: Spontaneous
  Country: US (occurrence: US)
  Receive Date: 20170805
  Receipt Date: 20170805
  Transmission Date: 20171127
  Serious: Yes (Hospitalization)
  Sender: FDA-Public Use
  Company Number: None

PATIENT
  Age: 58 Year
  Sex: Female
  Weight: 73.91 kg

DRUGS (10)
  1. NICOTINE TRANSDERMAL SYSTEM [Concomitant]
     Active Substance: NICOTINE
  2. LORATADINE. [Concomitant]
     Active Substance: LORATADINE
  3. VANCOMYCIN [Concomitant]
     Active Substance: VANCOMYCIN
  4. TOPIRAMATE. [Concomitant]
     Active Substance: TOPIRAMATE
  5. ZOSYN [Concomitant]
     Active Substance: PIPERACILLIN SODIUM\TAZOBACTAM SODIUM
  6. HEPARIN [Concomitant]
     Active Substance: HEPARIN SODIUM
  7. SEROQUEL [Concomitant]
     Active Substance: QUETIAPINE FUMARATE
  8. PANTOPRAZOLE [Concomitant]
     Active Substance: PANTOPRAZOLE
  9. MIRALAX [Concomitant]
     Active Substance: POLYETHYLENE GLYCOL 3350
  10. HARVONI [Suspect]
     Active Substance: LEDIPASVIR\SOFOSBUVIR
     Indication: HEPATITIS C
     Dosage: 90-400MG DAILY ORAL
     Route: 048
     Dates: start: 20170415, end: 20170609

REACTIONS (5)
  - Nausea [None]
  - Cellulitis [None]
  - Inflammation [None]
  - Dyspnoea [None]
  - Pyrexia [None]

NARRATIVE: CASE EVENT DATE: 20170509
